FAERS Safety Report 9023617 (Version 1)
Quarter: 2013Q1

REPORT INFORMATION
  Report Type: Spontaneous
  Country: US (occurrence: US)
  Receive Date: 20130121
  Receipt Date: 20130121
  Transmission Date: 20140127
  Serious: No
  Sender: FDA-Public Use
  Company Number: US-MYLANLABS-2012S1016311

PATIENT
  Age: 39 Year
  Sex: Female

DRUGS (1)
  1. CETIRIZINE HYDROCHLORIDE [Suspect]
     Route: 048
     Dates: start: 20120807, end: 20120807

REACTIONS (2)
  - Wrong drug administered [Recovered/Resolved]
  - Dizziness [Recovering/Resolving]
